FAERS Safety Report 18971145 (Version 1)
Quarter: 2021Q1

REPORT INFORMATION
  Report Type: Report from Study
  Country: DE (occurrence: DE)
  Receive Date: 20210305
  Receipt Date: 20210305
  Transmission Date: 20210420
  Serious: Yes (Death, Life-Threatening, Hospitalization)
  Sender: FDA-Public Use
  Company Number: DE-ACCORD-218855

PATIENT
  Age: 50 Year
  Sex: Male

DRUGS (12)
  1. GUSELKUMAB [Suspect]
     Active Substance: GUSELKUMAB
     Indication: PSORIASIS
     Dosage: 200 MG
     Route: 058
     Dates: start: 20181026
  2. SECUKINUMAB. [Suspect]
     Active Substance: SECUKINUMAB
     Indication: PSORIASIS
     Dosage: 300 MG
     Route: 065
     Dates: start: 20180207, end: 201807
  3. IRON [Concomitant]
     Active Substance: IRON
     Indication: ANAEMIA
     Dosage: 100 MG, 1X/DAY (1?0?0)
     Route: 065
     Dates: start: 20181107
  4. RAMIPRIL. [Concomitant]
     Active Substance: RAMIPRIL
     Indication: HYPERTENSION
     Dosage: 2.5 MG, 1X/DAY (1?0?0)
     Route: 065
     Dates: start: 20181107
  5. FOLIC ACID. [Concomitant]
     Active Substance: FOLIC ACID
     Indication: FOLATE DEFICIENCY
     Dosage: 5 MG, 1X/DAY (1?0?0)
     Route: 065
     Dates: start: 20181107
  6. SECUKINUMAB. [Suspect]
     Active Substance: SECUKINUMAB
     Indication: PSORIASIS
     Dosage: 300 MG
     Route: 065
     Dates: start: 20180702, end: 20180715
  7. RIFAXIMIN. [Concomitant]
     Active Substance: RIFAXIMIN
     Indication: HEPATIC CIRRHOSIS
     Dosage: 550 MG, 2X/DAY (1?0?1)
     Route: 065
     Dates: start: 20181107
  8. COSENTYX [Suspect]
     Active Substance: SECUKINUMAB
     Indication: PSORIASIS
     Dosage: 300 MG
     Route: 065
     Dates: start: 20150610, end: 20151201
  9. SPIRONOLACTONE. [Concomitant]
     Active Substance: SPIRONOLACTONE
     Indication: HYPERTENSION
     Dosage: 50 MG, 2X/DAY (1?1?0)
     Route: 065
     Dates: start: 20181107
  10. TORASEMIDE [Concomitant]
     Active Substance: TORSEMIDE
     Indication: HYPERTENSION
     Dosage: 10 MG, 1X/DAY (1?0?0)
     Route: 065
     Dates: start: 20181107
  11. GUSELKUMAB [Suspect]
     Active Substance: GUSELKUMAB
     Indication: PSORIASIS
     Dosage: 200 MG
     Route: 058
     Dates: start: 20180731
  12. METHOTREXATE. [Suspect]
     Active Substance: METHOTREXATE
     Indication: PRODUCT USED FOR UNKNOWN INDICATION
     Route: 065

REACTIONS (11)
  - Pain [Unknown]
  - Somnolence [Fatal]
  - Sepsis [Fatal]
  - Colitis ischaemic [Fatal]
  - Drug ineffective [Unknown]
  - Megacolon [Fatal]
  - Depression [Unknown]
  - General physical health deterioration [Fatal]
  - Dyspnoea [Fatal]
  - Circulatory collapse [Fatal]
  - Septic shock [Fatal]

NARRATIVE: CASE EVENT DATE: 2018
